FAERS Safety Report 6503494-0 (Version None)
Quarter: 2009Q4

REPORT INFORMATION
  Report Type: 
  Country: None (occurrence: None)
  Receive Date: 20091217
  Receipt Date: 20091207
  Transmission Date: 20100525
  Serious: Yes (Hospitalization)
  Sender: FDA-Public Use
  Company Number: FR-PFIZER INC-2009306542

PATIENT
  Age: 66 Year
  Sex: Female

DRUGS (6)
  1. TRIFLUCAN [Suspect]
     Dosage: 50 MG, 1X/DAY
     Route: 048
     Dates: start: 20091117, end: 20091117
  2. MEDROL [Suspect]
     Indication: SINUSITIS
     Dosage: 16 MG, 1X/DAY
     Route: 048
     Dates: start: 20091117, end: 20091117
  3. TAVANIC [Suspect]
     Indication: SINUSITIS
     Dosage: 500 MG, 1X/DAY
     Route: 048
     Dates: start: 20091117, end: 20091117
  4. SECTRAL [Concomitant]
     Dosage: UNK
  5. CORTANCYL [Concomitant]
     Dosage: UNK
  6. ARAVA [Concomitant]
     Dosage: UNK

REACTIONS (2)
  - ANGIOEDEMA [None]
  - URTICARIA [None]
